FAERS Safety Report 12881895 (Version 3)
Quarter: 2017Q1

REPORT INFORMATION
  Report Type: Report from Study
  Country: US (occurrence: US)
  Receive Date: 20161025
  Receipt Date: 20170124
  Transmission Date: 20170428
  Serious: No
  Sender: FDA-Public Use
  Company Number: US-AMGEN-USASL2016136593

PATIENT
  Age: 65 Year
  Sex: Female
  Weight: 76.64 kg

DRUGS (2)
  1. REPATHA [Suspect]
     Active Substance: EVOLOCUMAB
     Indication: BLOOD CHOLESTEROL INCREASED
     Dosage: 140 MG, Q2WK
     Route: 058
     Dates: start: 201510
  2. REPATHA [Suspect]
     Active Substance: EVOLOCUMAB
     Indication: HYPERLIPIDAEMIA
     Dosage: 140 MG, QMO
     Route: 058

REACTIONS (7)
  - Anaemia [Unknown]
  - Drug dose omission [Unknown]
  - Off label use [Unknown]
  - Rhinorrhoea [Unknown]
  - Underdose [Unknown]
  - Pruritus [Unknown]
  - Rhinalgia [Unknown]

NARRATIVE: CASE EVENT DATE: 20161001
